FAERS Safety Report 13359530 (Version 1)
Quarter: 2017Q1

REPORT INFORMATION
  Report Type: Spontaneous
  Country: US (occurrence: US)
  Receive Date: 20170322
  Receipt Date: 20170322
  Transmission Date: 20170429
  Serious: No
  Sender: FDA-Public Use
  Company Number: US-DEPOMED, INC.-US-2017DEP000021

PATIENT

DRUGS (2)
  1. GRALISE [Suspect]
     Active Substance: GABAPENTIN
     Dosage: 1800 MG, QD, WITH MEAL
     Route: 048
     Dates: start: 2015, end: 201612
  2. GRALISE [Suspect]
     Active Substance: GABAPENTIN
     Indication: FIBROMYALGIA
     Dosage: TITRATED TO 1800 MG ONCE DAILY
     Route: 048
     Dates: start: 2015, end: 2015

REACTIONS (2)
  - Product use issue [Recovered/Resolved]
  - Drug dose titration not performed [Unknown]

NARRATIVE: CASE EVENT DATE: 2015
